FAERS Safety Report 15634171 (Version 2)
Quarter: 2019Q1

REPORT INFORMATION
  Report Type: Spontaneous
  Country: DE (occurrence: DE)
  Receive Date: 20181119
  Receipt Date: 20190313
  Transmission Date: 20190417
  Serious: No
  Sender: FDA-Public Use
  Company Number: DE-OTSUKA-2018_036384

PATIENT
  Sex: Female

DRUGS (2)
  1. ABILIFY MAINTENA [Suspect]
     Active Substance: ARIPIPRAZOLE
     Indication: SCHIZOPHRENIA
     Dosage: UNK
     Route: 065
  2. ABILIFY MAINTENA [Suspect]
     Active Substance: ARIPIPRAZOLE
     Dosage: 300 MG, UNK
     Route: 065

REACTIONS (2)
  - Packaging design issue [Unknown]
  - Product preparation issue [Unknown]
